FAERS Safety Report 8418816-3 (Version None)
Quarter: 2012Q2

REPORT INFORMATION
  Report Type: 
  Country: None (occurrence: None)
  Receive Date: 20120531
  Receipt Date: 20120522
  Transmission Date: 20120825
  Serious: Yes (Hospitalization, Other)
  Sender: FDA-Public Use
  Company Number: 2012S1000597

PATIENT
  Age: 72 Year
  Sex: Female
  Weight: 65.77 kg

DRUGS (3)
  1. LIVALO [Suspect]
     Indication: BLOOD CHOLESTEROL
     Dosage: 2 MG;1X;PO
     Route: 048
     Dates: start: 20111201, end: 20120408
  2. FISH OIL [Concomitant]
  3. LEVOTHYROXINE SODIUM [Concomitant]

REACTIONS (3)
  - COLD SWEAT [None]
  - LIVER FUNCTION TEST ABNORMAL [None]
  - HEPATIC PAIN [None]
